FAERS Safety Report 8758346 (Version 2)
Quarter: 2012Q4

REPORT INFORMATION
  Report Type: Spontaneous
  Country: US (occurrence: None)
  Receive Date: 20120816
  Receipt Date: 20120827
  Transmission Date: 20130627
  Serious: Yes (Other)
  Sender: FDA-Public Use
  Company Number: ACO_31492_2012

PATIENT
  Age: 26 Year
  Sex: Female
  Weight: 85.7 kg

DRUGS (7)
  1. AMPYRA [Suspect]
     Indication: DRUG USE FOR UNKNOWN INDICATION
     Dates: end: 2012
  2. AMPYRA [Suspect]
     Indication: DRUG USE FOR UNKNOWN INDICATION
     Dates: start: 2012
  3. GILENYA [Suspect]
     Indication: DRUG USE FOR UNKNOWN INDICATION
     Dates: end: 2012
  4. BACLOFEN [Concomitant]
  5. PRIMIDONE [Concomitant]
  6. MEDROL (METHYLPREDNISOLONE) [Concomitant]
  7. PHENERGAN (PROMETHAZINE) [Concomitant]

REACTIONS (6)
  - Liver function test abnormal [None]
  - Paranasal sinus benign neoplasm [None]
  - Rash [None]
  - Headache [None]
  - Ocular icterus [None]
  - Malaise [None]
